FAERS Safety Report 6695327-7 (Version None)
Quarter: 2010Q2

REPORT INFORMATION
  Report Type: 
  Country: None (occurrence: None)
  Receive Date: 20100423
  Receipt Date: 20100413
  Transmission Date: 20101027
  Serious: Yes (Other)
  Sender: FDA-Public Use
  Company Number: US-JNJFOC-20100405299

PATIENT
  Age: 42 Year
  Sex: Female

DRUGS (3)
  1. REMICADE [Suspect]
     Indication: DRUG EXPOSURE DURING PREGNANCY
     Route: 050
  2. REMICADE [Suspect]
     Route: 050
  3. ANTIBIOTICS [Concomitant]
     Indication: DRUG EXPOSURE DURING PREGNANCY

REACTIONS (2)
  - DRUG EXPOSURE DURING PREGNANCY [None]
  - PREMATURE LABOUR [None]
